FAERS Safety Report 18515096 (Version 1)
Quarter: 2020Q4

REPORT INFORMATION
  Report Type: Spontaneous
  Country: FR (occurrence: FR)
  Receive Date: 20201118
  Receipt Date: 20201118
  Transmission Date: 20210114
  Serious: Yes (Hospitalization, Other)
  Sender: FDA-Public Use
  Company Number: FR-AMGEN-FRASP2020184482

PATIENT
  Age: 55 Year
  Sex: Male
  Weight: 59 kg

DRUGS (1)
  1. OTEZLA [Suspect]
     Active Substance: APREMILAST
     Indication: PRODUCT USED FOR UNKNOWN INDICATION
     Dosage: 2 DOSAGE FORM, QD
     Route: 048
     Dates: start: 20171229

REACTIONS (2)
  - Hepatic cirrhosis [Recovered/Resolved with Sequelae]
  - Gastrointestinal viral infection [Recovered/Resolved]

NARRATIVE: CASE EVENT DATE: 201907
